FAERS Safety Report 7795117-8 (Version None)
Quarter: 2011Q4

REPORT INFORMATION
  Report Type: 
  Country: None (occurrence: None)
  Receive Date: 20111003
  Receipt Date: 20111003
  Transmission Date: 20120403
  Serious: Yes (Hospitalization)
  Sender: FDA-Public Use
  Company Number: None

PATIENT
  Age: 56 Year
  Sex: Male
  Weight: 65.9 kg

DRUGS (1)
  1. QUETIAPINE [Suspect]
     Dates: start: 20110801

REACTIONS (1)
  - PSYCHOTIC DISORDER [None]
